FAERS Safety Report 20577583 (Version 19)
Quarter: 2022Q3

REPORT INFORMATION
  Report Type: Spontaneous
  Country: GB (occurrence: GB)
  Receive Date: 20220310
  Receipt Date: 20220714
  Transmission Date: 20221027
  Serious: Yes (Other)
  Sender: FDA-Public Use
  Company Number: GB-MYLANLABS-2022M1017153

PATIENT
  Age: 40 Year
  Sex: Female

DRUGS (13)
  1. CLOZARIL [Suspect]
     Active Substance: CLOZAPINE
     Indication: Schizophrenia
     Dosage: 350 MILLIGRAM, QD
     Route: 048
     Dates: start: 20060117
  2. CLOZARIL [Suspect]
     Active Substance: CLOZAPINE
     Dosage: 1400 MILLIGRAM, QD (350 MG, QID)
     Route: 048
     Dates: start: 20060117
  3. CLOZARIL [Suspect]
     Active Substance: CLOZAPINE
     Dosage: 250 MILLIGRAM, QID/2015
     Route: 048
     Dates: end: 201506
  4. CLOZARIL [Suspect]
     Active Substance: CLOZAPINE
     Dosage: 1000 MILLIGRAM, QD (250 MG, QID )
     Route: 048
     Dates: end: 201506
  5. CLOZARIL [Suspect]
     Active Substance: CLOZAPINE
     Dosage: 1000 MILLIGRAM, QD, 250 MG, QD/START DATE: 2015
     Route: 048
     Dates: end: 20150601
  6. CLOZARIL [Suspect]
     Active Substance: CLOZAPINE
     Dosage: 1400 MILLIGRAM, QD
     Route: 048
     Dates: start: 20060617
  7. CLOZARIL [Suspect]
     Active Substance: CLOZAPINE
     Dosage: 250 MILLIGRAM, QID
     Route: 048
     Dates: start: 201506
  8. CLOZARIL [Suspect]
     Active Substance: CLOZAPINE
     Dosage: 1000 MILLIGRAM, QD
     Route: 048
     Dates: start: 2015, end: 20150601
  9. ARIPIPRAZOLE [Suspect]
     Active Substance: ARIPIPRAZOLE
     Indication: Product used for unknown indication
     Dosage: 20 MILLIGRAM QD/ START DATE: 01-JUN-2015
     Route: 048
     Dates: end: 20150601
  10. AMISULPRIDE [Concomitant]
     Active Substance: AMISULPRIDE
     Indication: Product used for unknown indication
     Dosage: 800 MILLIGRAM/01-JUN-2015
     Route: 048
     Dates: end: 20150601
  11. PAROXETINE [Concomitant]
     Active Substance: PAROXETINE
     Indication: Product used for unknown indication
     Dosage: 40 MILLIGRAM
     Route: 048
  12. PAROXETINE [Concomitant]
     Active Substance: PAROXETINE
     Dosage: UNK
     Route: 048
  13. PAROXETINE [Concomitant]
     Active Substance: PAROXETINE
     Dosage: UNK
     Route: 065

REACTIONS (8)
  - Hepatic cirrhosis [Unknown]
  - Liver function test abnormal [Recovering/Resolving]
  - Sedation complication [Recovered/Resolved]
  - Antipsychotic drug level above therapeutic [Unknown]
  - Gamma-glutamyltransferase increased [Unknown]
  - Fatigue [Recovering/Resolving]
  - Dizziness [Recovered/Resolved]
  - Sedation [Recovered/Resolved]

NARRATIVE: CASE EVENT DATE: 20150201
